FAERS Safety Report 5274860-9 (Version None)
Quarter: 2007Q1

REPORT INFORMATION
  Report Type: 
  Country: None (occurrence: None)
  Receive Date: 20061208
  Receipt Date: 20060501
  Transmission Date: 20070707
  Serious: Yes (Hospitalization)
  Sender: FDA-Public Use
  Company Number: 2006UW07872

PATIENT
  Age: 54 Year
  Sex: Female

DRUGS (8)
  1. CRESTOR [Suspect]
     Dosage: 40 MG PO
     Route: 048
     Dates: start: 20060326
  2. ATENOLOL [Concomitant]
  3. HYDROCHLOROTHIAZIDE [Concomitant]
  4. AMARYL [Concomitant]
  5. DIOVAN [Concomitant]
  6. GLUCOVANCE [Concomitant]
  7. AVANDIA [Concomitant]
  8. ZETIA [Concomitant]

REACTIONS (1)
  - RENAL FAILURE [None]
